FAERS Safety Report 9151166 (Version 1)
Quarter: 2013Q1

REPORT INFORMATION
  Report Type: Spontaneous
  Country: JP (occurrence: JP)
  Receive Date: 20130308
  Receipt Date: 20130308
  Transmission Date: 20140127
  Serious: Yes (Hospitalization)
  Sender: FDA-Public Use
  Company Number: JP-B.I. PHARMACEUTICALS,INC./RIDGEFIELD-2013-BI-05551NB

PATIENT
  Age: 81 Year
  Sex: Female

DRUGS (5)
  1. PRADAXA [Suspect]
     Dosage: 220 MG
     Route: 048
  2. OLMETEC [Concomitant]
     Dosage: 20 MG
     Route: 048
  3. ALOSITOL [Concomitant]
     Dosage: 100 MG
     Route: 048
  4. SIGMART [Concomitant]
     Dosage: 15 MG
     Route: 048
  5. LASIX [Concomitant]
     Dosage: 40 MG
     Route: 048

REACTIONS (2)
  - Subdural haematoma [Unknown]
  - Fall [Unknown]
